FAERS Safety Report 7780702-X (Version None)
Quarter: 2011Q3

REPORT INFORMATION
  Report Type: 
  Country: None (occurrence: None)
  Receive Date: 20110927
  Receipt Date: 20110405
  Transmission Date: 20111222
  Serious: No
  Sender: FDA-Public Use
  Company Number: US-BRISTOL-MYERS SQUIBB COMPANY-15654114

PATIENT
  Age: 65 Year
  Sex: Female
  Weight: 77 kg

DRUGS (13)
  1. LASIX [Concomitant]
  2. POTASSIUM CHLORIDE [Concomitant]
  3. VITAMIN TAB [Concomitant]
     Dosage: CALCIUM PLUS VIT D
  4. ASCORBIC ACID [Concomitant]
  5. HYDROCHLOROTHIAZIDE [Concomitant]
  6. AROMASIN [Concomitant]
  7. EFFEXOR XR [Concomitant]
  8. PROTONIX [Concomitant]
  9. SIMVASTATIN [Concomitant]
  10. OMEGA 3 FATTY ACID [Concomitant]
  11. AVAPRO [Suspect]
     Dates: start: 20110404
  12. METFORMIN HCL [Concomitant]
  13. NEURONTIN [Concomitant]

REACTIONS (2)
  - DIZZINESS [None]
  - NAUSEA [None]
